FAERS Safety Report 23546562 (Version 1)
Quarter: 2024Q1

REPORT INFORMATION
  Report Type: Spontaneous
  Country: US (occurrence: US)
  Receive Date: 20240221
  Receipt Date: 20240221
  Transmission Date: 20240409
  Serious: Yes (Hospitalization)
  Sender: FDA-Public Use
  Company Number: US-SA-SAC20240219000311

PATIENT
  Sex: Female
  Weight: 39.46 kg

DRUGS (13)
  1. DUPIXENT [Suspect]
     Active Substance: DUPILUMAB
     Indication: Asthma
     Dosage: 2 ML, QOW
     Route: 058
  2. MIRTAZAPINE [Concomitant]
     Active Substance: MIRTAZAPINE
  3. CEFDINIR [Concomitant]
     Active Substance: CEFDINIR
  4. POTASSIUM [Concomitant]
     Active Substance: POTASSIUM
  5. ALBUTEROL\IPRATROPIUM [Concomitant]
     Active Substance: ALBUTEROL\IPRATROPIUM
  6. MIRTAZAPINE [Concomitant]
     Active Substance: MIRTAZAPINE
  7. AZELASTINE HYDROCHLORIDE [Concomitant]
     Active Substance: AZELASTINE HYDROCHLORIDE
  8. SINGULAIR [Concomitant]
     Active Substance: MONTELUKAST SODIUM
  9. OMEPRAZOLE [Concomitant]
     Active Substance: OMEPRAZOLE
  10. LORATADINE [Concomitant]
     Active Substance: LORATADINE
  11. WIXELA INHUB [Concomitant]
     Active Substance: FLUTICASONE PROPIONATE\SALMETEROL XINAFOATE
  12. MAGNESIUM [Concomitant]
     Active Substance: MAGNESIUM
  13. OMEGA-3 FATTY ACIDS [Concomitant]
     Active Substance: OMEGA-3 FATTY ACIDS

REACTIONS (3)
  - Hospitalisation [Unknown]
  - Pain [Unknown]
  - Asthma [Unknown]
